FAERS Safety Report 7058800-8 (Version None)
Quarter: 2010Q4

REPORT INFORMATION
  Report Type: 
  Country: None (occurrence: None)
  Receive Date: 20101022
  Receipt Date: 20101015
  Transmission Date: 20110411
  Serious: Yes (Hospitalization)
  Sender: FDA-Public Use
  Company Number: NL-ABBOTT-10P-114-0656573-00

PATIENT
  Sex: Female
  Weight: 90 kg

DRUGS (6)
  1. LUCRIN [Suspect]
     Indication: LEIOMYOMA
     Route: 058
     Dates: start: 20100301
  2. DICLOFENAC SODIUM [Concomitant]
     Indication: NEPHROLITHIASIS
     Dosage: MSR, AS NEEDED
     Route: 065
  3. DICLOFENAC SODIUM [Concomitant]
     Indication: PAIN
  4. HYDROCHLOROTHIAZIDE [Concomitant]
     Indication: BLOOD PRESSURE
     Route: 065
     Dates: start: 20020101
  5. METOPROLOL SUCCINATE [Concomitant]
     Indication: BLOOD PRESSURE
     Dosage: MGA- ONE TAB DAILY
     Route: 065
     Dates: start: 20030101
  6. NIFEDIPINE [Concomitant]
     Indication: BLOOD PRESSURE
     Route: 065
     Dates: start: 20030101

REACTIONS (4)
  - DIARRHOEA [None]
  - DIZZINESS [None]
  - LEIOMYOMA [None]
  - NAUSEA [None]
